FAERS Safety Report 6373752-1 (Version None)
Quarter: 2009Q3

REPORT INFORMATION
  Report Type: 
  Country: None (occurrence: None)
  Receive Date: 20090924
  Receipt Date: 20090529
  Transmission Date: 20100115
  Serious: Yes (Other)
  Sender: FDA-Public Use
  Company Number: US-ASTRAZENECA-2009UW10609

PATIENT
  Age: 11832 Day
  Sex: Male
  Weight: 62.6 kg

DRUGS (5)
  1. SEROQUEL [Suspect]
     Indication: BIPOLAR DISORDER
     Route: 048
  2. SEROQUEL [Suspect]
     Dosage: TITRATING
     Route: 048
     Dates: start: 20090310, end: 20090312
  3. WELLBUTRIN [Concomitant]
  4. CELEXA [Concomitant]
     Indication: ANXIETY
     Dates: start: 20081121
  5. CLONOPIN [Concomitant]
     Indication: ANXIETY
     Dates: start: 20090218

REACTIONS (6)
  - CONFUSIONAL STATE [None]
  - CONVULSION [None]
  - FATIGUE [None]
  - HEADACHE [None]
  - MUSCLE SPASMS [None]
  - UNRESPONSIVE TO STIMULI [None]
